FAERS Safety Report 25620335 (Version 1)
Quarter: 2025Q3

REPORT INFORMATION
  Report Type: Spontaneous
  Country: US (occurrence: US)
  Receive Date: 20250730
  Receipt Date: 20250730
  Transmission Date: 20251021
  Serious: Yes (Other)
  Sender: COOPERSURGICAL
  Company Number: US-COOPERSURGICAL, INC.-2025CPS005757

PATIENT
  Sex: Female
  Weight: 64.399 kg

DRUGS (2)
  1. PARAGARD T 380A [Suspect]
     Active Substance: COPPER
     Indication: Contraception
     Route: 015
     Dates: start: 20171130
  2. PARAGARD T 380A [Suspect]
     Active Substance: COPPER
     Indication: Menstruation irregular

REACTIONS (26)
  - Surgery [Recovered/Resolved]
  - Hysterectomy [Recovered/Resolved]
  - Salpingectomy [Recovered/Resolved]
  - Infertility female [Not Recovered/Not Resolved]
  - Reproductive complication associated with device [Not Recovered/Not Resolved]
  - Device breakage [Recovered/Resolved]
  - Foreign body in reproductive tract [Recovered/Resolved]
  - Complication of device removal [Recovered/Resolved]
  - Embedded device [Recovered/Resolved]
  - Stress [Recovered/Resolved]
  - Procedural pain [Recovered/Resolved]
  - Emotional distress [Unknown]
  - Genital lesion [Unknown]
  - Vulvovaginal pruritus [Unknown]
  - Complication associated with device [Recovered/Resolved]
  - Unevaluable event [Recovered/Resolved]
  - Abnormal uterine bleeding [Recovered/Resolved]
  - Dyspareunia [Not Recovered/Not Resolved]
  - Menstrual disorder [Recovered/Resolved]
  - Abdominal pain [Unknown]
  - Vaginal discharge [Unknown]
  - Bacterial vulvovaginitis [Unknown]
  - Vaginal infection [Unknown]
  - Dysmenorrhoea [Recovered/Resolved]
  - Device dislocation [Recovered/Resolved]
  - Heavy menstrual bleeding [Recovered/Resolved]

NARRATIVE: CASE EVENT DATE: 20170101
